FAERS Safety Report 10766021 (Version 1)
Quarter: 2015Q1

REPORT INFORMATION
  Report Type: Spontaneous
  Country: JP (occurrence: JP)
  Receive Date: 20150205
  Receipt Date: 20150205
  Transmission Date: 20150721
  Serious: Yes (Other)
  Sender: FDA-Public Use
  Company Number: JP-PFIZER INC-2015047378

PATIENT
  Age: 66 Year
  Sex: Male

DRUGS (2)
  1. SUINY [Concomitant]
     Dosage: UNK
  2. LYRICA [Suspect]
     Active Substance: PREGABALIN
     Indication: OSTEOCHONDROSIS
     Dosage: 75 MG, DAILY
     Route: 048
     Dates: start: 201407, end: 201501

REACTIONS (3)
  - Product use issue [Unknown]
  - Blood creatinine increased [Unknown]
  - Tubulointerstitial nephritis [Not Recovered/Not Resolved]

NARRATIVE: CASE EVENT DATE: 20150115
